FAERS Safety Report 17204332 (Version 3)
Quarter: 2020Q3

REPORT INFORMATION
  Report Type: Report from Study
  Country: CA (occurrence: CA)
  Receive Date: 20191226
  Receipt Date: 20200709
  Transmission Date: 20201102
  Serious: Yes (Hospitalization, Other)
  Sender: FDA-Public Use
  Company Number: CA-JNJFOC-20191011801

PATIENT
  Age: 63 Year
  Sex: Female

DRUGS (2)
  1. STELARA [Suspect]
     Active Substance: USTEKINUMAB
     Indication: CROHN^S DISEASE
     Route: 058
     Dates: start: 20190619
  2. STELARA [Suspect]
     Active Substance: USTEKINUMAB

REACTIONS (9)
  - Abdominal pain upper [Unknown]
  - Headache [Unknown]
  - Bile duct stent insertion [Unknown]
  - Hernia [Not Recovered/Not Resolved]
  - Vomiting [Unknown]
  - Colectomy [Unknown]
  - Cholecystectomy [Unknown]
  - Sepsis [Unknown]
  - Abdominal distension [Unknown]

NARRATIVE: CASE EVENT DATE: 2019
